FAERS Safety Report 12931094 (Version 2)
Quarter: 2017Q1

REPORT INFORMATION
  Report Type: Report from Study
  Country: US (occurrence: US)
  Receive Date: 20161110
  Receipt Date: 20170123
  Transmission Date: 20170428
  Serious: Yes (Death, Hospitalization)
  Sender: FDA-Public Use
  Company Number: US-EXELIXIS-CABO-16007519

PATIENT
  Age: 78 Year
  Sex: Female

DRUGS (4)
  1. CABOMETYX [Suspect]
     Active Substance: CABOZANTINIB S-MALATE
     Indication: RENAL CANCER
     Dosage: 60 MG, QD
     Route: 048
     Dates: start: 201611, end: 20161121
  2. SUTENT [Concomitant]
     Active Substance: SUNITINIB MALATE
  3. XGEVA [Concomitant]
     Active Substance: DENOSUMAB
  4. PROCRIT [Concomitant]
     Active Substance: ERYTHROPOIETIN

REACTIONS (2)
  - Pulmonary oedema [Unknown]
  - Death [Fatal]

NARRATIVE: CASE EVENT DATE: 20161102
